FAERS Safety Report 14612722 (Version 3)
Quarter: 2018Q2

REPORT INFORMATION
  Report Type: Spontaneous
  Country: US (occurrence: US)
  Receive Date: 20180308
  Receipt Date: 20180522
  Transmission Date: 20180711
  Serious: No
  Sender: FDA-Public Use
  Company Number: US-PFIZER INC-2018089188

PATIENT
  Age: 13 Year
  Sex: Male
  Weight: 41.72 kg

DRUGS (2)
  1. TRAZODONE [Concomitant]
     Active Substance: TRAZODONE HYDROCHLORIDE
     Indication: SLEEP DISORDER
     Dosage: 100 MG, ONCE DAILY AT NIGHT
     Dates: end: 201804
  2. GENOTROPIN [Suspect]
     Active Substance: SOMATROPIN
     Indication: GROWTH HORMONE DEFICIENCY
     Dosage: 2 MG, ONCE DAILY AT NIGHT
     Dates: start: 2017

REACTIONS (5)
  - Product storage error [Unknown]
  - Product quality issue [Unknown]
  - Poor quality drug administered [Unknown]
  - Disease recurrence [Unknown]
  - Insomnia [Unknown]

NARRATIVE: CASE EVENT DATE: 20180228
